FAERS Safety Report 7645317-2 (Version None)
Quarter: 2011Q3

REPORT INFORMATION
  Report Type: 
  Country: None (occurrence: None)
  Receive Date: 20110729
  Receipt Date: 20110720
  Transmission Date: 20111222
  Serious: Yes (Disabling)
  Sender: FDA-Public Use
  Company Number: DE-ASTRAZENECA-2011SE43661

PATIENT
  Age: 70 Year
  Sex: Female
  Weight: 105 kg

DRUGS (1)
  1. ARIMIDEX [Suspect]
     Indication: BREAST CANCER
     Dosage: 1 MG: 1-0-0
     Route: 048
     Dates: start: 20060101, end: 20080901

REACTIONS (3)
  - JOINT STIFFNESS [None]
  - MOVEMENT DISORDER [None]
  - WALKING DISABILITY [None]
